FAERS Safety Report 5668749-0 (Version None)
Quarter: 2008Q1

REPORT INFORMATION
  Report Type: 
  Country: None (occurrence: None)
  Receive Date: 20080312
  Receipt Date: 20080312
  Transmission Date: 20080703
  Serious: Yes (Hospitalization)
  Sender: FDA-Public Use
  Company Number: None

PATIENT
  Age: 66 Year
  Sex: Male
  Weight: 77.11 kg

DRUGS (1)
  1. FLUOXETINE [Suspect]
     Indication: DEPRESSION
     Dosage: 20MG EVERY DAY PO
     Route: 048
     Dates: start: 20071031, end: 20071119

REACTIONS (5)
  - ABDOMINAL PAIN [None]
  - BACK PAIN [None]
  - DECREASED APPETITE [None]
  - FLUID INTAKE REDUCED [None]
  - INAPPROPRIATE ANTIDIURETIC HORMONE SECRETION [None]
